FAERS Safety Report 5010404-4 (Version None)
Quarter: 2006Q2

REPORT INFORMATION
  Report Type: 
  Country: None (occurrence: None)
  Receive Date: 20060404
  Receipt Date: 20060220
  Transmission Date: 20061013
  Serious: No
  Sender: FDA-Public Use
  Company Number: US200512003947

PATIENT
  Age: 42 Year
  Sex: Female

DRUGS (4)
  1. CYMBALTA [Suspect]
     Indication: PAIN
     Dosage: 30 MG, ORAL; 60 MG; 30 MG
     Route: 048
     Dates: start: 20050921, end: 20050927
  2. CYMBALTA [Suspect]
     Indication: PAIN
     Dosage: 30 MG, ORAL; 60 MG; 30 MG
     Route: 048
     Dates: start: 20050928, end: 20051030
  3. CYMBALTA [Suspect]
     Indication: PAIN
     Dosage: 30 MG, ORAL; 60 MG; 30 MG
     Route: 048
     Dates: start: 20051031, end: 20051120
  4. INDERAL [Concomitant]

REACTIONS (3)
  - DIZZINESS [None]
  - HEADACHE [None]
  - MIGRAINE [None]
